FAERS Safety Report 7226300-8 (Version None)
Quarter: 2011Q1

REPORT INFORMATION
  Report Type: 
  Country: None (occurrence: None)
  Receive Date: 20110114
  Receipt Date: 20110106
  Transmission Date: 20110831
  Serious: Yes (Hospitalization)
  Sender: FDA-Public Use
  Company Number: PHHY2011FR01450

PATIENT
  Sex: Male

DRUGS (8)
  1. TRIMEPRAZINE TARTRATE [Suspect]
     Indication: INSOMNIA
     Dosage: 15 DRP, QD
  2. TRANXENE [Suspect]
     Indication: ANXIETY
     Dosage: 20 MG, TID
  3. KEPPRA [Suspect]
     Indication: EPILEPSY
     Dosage: 10 MG, QID
  4. ATARAX [Suspect]
     Indication: ANXIETY
     Dosage: 25 MG, BID
  5. ABILIFY [Suspect]
     Dosage: 10 MG, BID
     Dates: start: 20100107
  6. LAMOTRIGINE [Suspect]
     Indication: EPILEPSY
     Dosage: 100 MG, BID
  7. URBANYL [Suspect]
     Indication: EPILEPSY
     Dosage: 10 MG, QID
  8. TEGRETOL [Suspect]
     Indication: EPILEPSY
     Dosage: 200 MG, TID

REACTIONS (3)
  - ABNORMAL BEHAVIOUR [None]
  - BRADYCARDIA [None]
  - ELECTROCARDIOGRAM QT PROLONGED [None]
